FAERS Safety Report 20716874 (Version 1)
Quarter: 2022Q2

REPORT INFORMATION
  Report Type: Spontaneous
  Country: US (occurrence: US)
  Receive Date: 20220416
  Receipt Date: 20220416
  Transmission Date: 20220721
  Serious: Yes (Life-Threatening, Hospitalization, Other)
  Sender: FDA-Public Use
  Company Number: US-UNITED THERAPEUTICS-UNT-2022-008176

PATIENT
  Age: 48 Year
  Sex: Female

DRUGS (2)
  1. REMODULIN [Suspect]
     Active Substance: TREPROSTINIL
     Indication: Pulmonary arterial hypertension
     Dosage: UNK, CONTINUING
     Route: 041
  2. REMODULIN [Suspect]
     Active Substance: TREPROSTINIL
     Dosage: 0.006 ?G/KG, CONTINUING
     Route: 041

REACTIONS (6)
  - Haemodynamic instability [Unknown]
  - Hypoxia [Unknown]
  - Dyspnoea [Unknown]
  - Syncope [Unknown]
  - Signet-ring cell carcinoma [Unknown]
  - Lung adenocarcinoma [Unknown]
